FAERS Safety Report 7014262-8 (Version None)
Quarter: 2010Q3

REPORT INFORMATION
  Report Type: 
  Country: None (occurrence: None)
  Receive Date: 20100927
  Receipt Date: 20100915
  Transmission Date: 20110219
  Serious: Yes (Hospitalization)
  Sender: FDA-Public Use
  Company Number: PT-JNJFOC-20100504631

PATIENT
  Age: 27 Year
  Sex: Male

DRUGS (6)
  1. REMICADE [Suspect]
     Indication: PSORIATIC ARTHROPATHY
     Route: 042
  2. REMICADE [Suspect]
     Route: 042
  3. REMICADE [Suspect]
     Route: 042
  4. REMICADE [Suspect]
     Route: 042
  5. METHOTREXATE [Concomitant]
  6. ANTI-INFLAMMATORY [Concomitant]

REACTIONS (3)
  - DISSEMINATED TUBERCULOSIS [None]
  - PSORIATIC ARTHROPATHY [None]
  - RESPIRATORY TRACT INFECTION [None]
